FAERS Safety Report 10263462 (Version 1)
Quarter: 2014Q2

REPORT INFORMATION
  Report Type: Spontaneous
  Country: US (occurrence: US)
  Receive Date: 20140626
  Receipt Date: 20140626
  Transmission Date: 20141212
  Serious: No
  Sender: FDA-Public Use
  Company Number: US-ASTRAZENECA-2014SE25994

PATIENT
  Age: 70 Year
  Sex: Male

DRUGS (1)
  1. BRILINTA [Suspect]
     Indication: CARDIOVASCULAR EVENT PROPHYLAXIS
     Route: 048

REACTIONS (2)
  - Dizziness [Unknown]
  - Abdominal discomfort [Unknown]
